FAERS Safety Report 10866644 (Version 3)
Quarter: 2015Q1

REPORT INFORMATION
  Report Type: Spontaneous
  Country: US (occurrence: US)
  Receive Date: 20150225
  Receipt Date: 20150331
  Transmission Date: 20150721
  Serious: Yes (Hospitalization)
  Sender: FDA-Public Use
  Company Number: US-BEH-2015048981

PATIENT
  Sex: Male
  Weight: 85 kg

DRUGS (17)
  1. LMX [Concomitant]
     Active Substance: LIDOCAINE
  2. ASMANEX [Concomitant]
     Active Substance: MOMETASONE FUROATE
  3. BUMETANIDE. [Concomitant]
     Active Substance: BUMETANIDE
  4. ZYLOPRIM [Concomitant]
     Active Substance: ALLOPURINOL
  5. LOPRESSOR [Concomitant]
     Active Substance: METOPROLOL TARTRATE
  6. SINGULAIR [Concomitant]
     Active Substance: MONTELUKAST SODIUM
  7. KLOR-CON [Concomitant]
     Active Substance: POTASSIUM CHLORIDE
  8. DUONEB [Concomitant]
     Active Substance: ALBUTEROL SULFATE\IPRATROPIUM BROMIDE
  9. HIZENTRA [Suspect]
     Active Substance: HUMAN IMMUNOGLOBULIN G
     Route: 058
  10. PRESERVISION [Concomitant]
     Active Substance: MINERALS\VITAMINS
  11. VITAMIN B12 [Concomitant]
     Active Substance: CYANOCOBALAMIN
  12. CEFDINIR. [Concomitant]
     Active Substance: CEFDINIR
  13. FLOMAX [Concomitant]
     Active Substance: TAMSULOSIN HYDROCHLORIDE
  14. GRALISE ER [Concomitant]
  15. HIZENTRA [Suspect]
     Active Substance: HUMAN IMMUNOGLOBULIN G
     Indication: IMMUNODEFICIENCY COMMON VARIABLE
     Route: 058
     Dates: start: 20140604
  16. EPIPEN [Concomitant]
     Active Substance: EPINEPHRINE
  17. PROTONIX DR [Concomitant]

REACTIONS (4)
  - Fatigue [Unknown]
  - Drug dose omission [Unknown]
  - Cardiac failure congestive [Recovered/Resolved]
  - Effusion [Unknown]
